FAERS Safety Report 7657350-5 (Version None)
Quarter: 2011Q3

REPORT INFORMATION
  Report Type: 
  Country: None (occurrence: None)
  Receive Date: 20110804
  Receipt Date: 20110801
  Transmission Date: 20111222
  Serious: Yes (Life-Threatening, Hospitalization, Disabling, Other)
  Sender: FDA-Public Use
  Company Number: PHHY2011US50215

PATIENT
  Sex: Male
  Weight: 64.853 kg

DRUGS (3)
  1. ANTIHYPERTENSIVE DRUGS [Concomitant]
  2. AFINITOR [Suspect]
     Indication: RENAL CANCER
     Dosage: 10 MG, THREE TIMES A WEEK
     Route: 048
     Dates: start: 20090101
  3. ANTICOAGULANTS [Concomitant]

REACTIONS (8)
  - FALL [None]
  - SPEECH DISORDER [None]
  - SENSORY LOSS [None]
  - CEREBROVASCULAR ACCIDENT [None]
  - DYSARTHRIA [None]
  - APHASIA [None]
  - VIITH NERVE PARALYSIS [None]
  - GAIT DISTURBANCE [None]
